FAERS Safety Report 6943383-0 (Version None)
Quarter: 2010Q3

REPORT INFORMATION
  Report Type: 
  Country: None (occurrence: None)
  Receive Date: 20100826
  Receipt Date: 20100709
  Transmission Date: 20110219
  Serious: No
  Sender: FDA-Public Use
  Company Number: US-PFIZER INC-2010063279

PATIENT
  Age: 60 Year
  Sex: Female

DRUGS (1)
  1. SERTRALINE HYDROCHLORIDE [Suspect]
     Dosage: 150 MG,ONE AND HALF TABLET DAILY
     Route: 048

REACTIONS (2)
  - DYSGEUSIA [None]
  - PRODUCT ODOUR ABNORMAL [None]
